FAERS Safety Report 18419321 (Version 3)
Quarter: 2020Q4

REPORT INFORMATION
  Report Type: Spontaneous
  Country: DE (occurrence: DE)
  Receive Date: 20201023
  Receipt Date: 20201224
  Transmission Date: 20210114
  Serious: Yes (Life-Threatening, Other)
  Sender: FDA-Public Use
  Company Number: DE-GLAXOSMITHKLINE-DE2020EME209785

PATIENT
  Age: 73 Year
  Sex: Female

DRUGS (9)
  1. ZEJULA [Suspect]
     Active Substance: NIRAPARIB
     Indication: OVARIAN CANCER
  2. COTRIMOXAZOL AL FORTE [Concomitant]
     Active Substance: SULFAMETHOXAZOLE\TRIMETHOPRIM
     Indication: IMMUNOSUPPRESSION
     Dosage: 1 DF, QD (20 TABLETS N2, 1 TABLET, MON-MI-FRI 1-0-0-0)
  3. L-THYROX HEXAL TABLET [Concomitant]
     Indication: HYPOTHYROIDISM
     Dosage: 1 DF, QD (75 MICROGRAM TABLETS 100 UNITS N3, 1 TABLET 1-0-0-0)
  4. ZEJULA [Suspect]
     Active Substance: NIRAPARIB
     Indication: OVARIAN CANCER RECURRENT
     Dosage: 200 MG, QD
     Dates: start: 20180302, end: 20201005
  5. COTRIMOXAZOL AL FORTE [Concomitant]
     Active Substance: SULFAMETHOXAZOLE\TRIMETHOPRIM
     Indication: INFECTION PROPHYLAXIS
  6. VITAMIN D3 [Concomitant]
     Active Substance: CHOLECALCIFEROL
     Indication: OSTEOPOROSIS
     Dosage: 1 DF, QD (20.000 L.E. SOFT CAPSULES 14 PCS, 1 CAPSULE, SAT. 1-0-0-0)
  7. OMEPRAZOL AL [Concomitant]
     Active Substance: OMEPRAZOLE
     Indication: GASTROINTESTINAL DISORDER PROPHYLAXIS
     Dosage: 1 DF, QD (40MG ENTERIC HARD CAPSULES 100 CAPSULES N3, 1 CAPSULE 1-0-0-0)
  8. VOLON A [Concomitant]
     Indication: APHTHOUS ULCER
     Dosage: 1 G, BID (ADHESIVE OINTMENT 1MG,/G FOR USE IN THE ORAL CAVITY 20G N2, 1G, 1-0-1-0)
  9. BISOPROLOL 1A PHARMA [Concomitant]
     Active Substance: BISOPROLOL
     Indication: HYPERTENSION
     Dosage: 1.25 MG, QD (100 UNITS N3, 1 TABLET, 1-0-0-0)

REACTIONS (4)
  - Acute erythroid leukaemia [Not Recovered/Not Resolved]
  - Platelet count decreased [Unknown]
  - Palliative care [Unknown]
  - Haemoglobin decreased [Unknown]

NARRATIVE: CASE EVENT DATE: 20201005
